FAERS Safety Report 9119395 (Version 6)
Quarter: 2015Q4

REPORT INFORMATION
  Report Type: Spontaneous
  Country: JP (occurrence: JP)
  Receive Date: 20130226
  Receipt Date: 20151104
  Transmission Date: 20160305
  Serious: Yes (Death, Hospitalization, Other)
  Sender: FDA-Public Use
  Company Number: JP-AMGEN-JPNSP2013012614

PATIENT
  Age: 65 Year
  Sex: Male
  Weight: 54.6 kg

DRUGS (6)
  1. VECTIBIX [Suspect]
     Active Substance: PANITUMUMAB
     Dosage: 330 MG, MONTHLY
     Route: 041
     Dates: start: 20121226, end: 20121226
  2. VECTIBIX [Suspect]
     Active Substance: PANITUMUMAB
     Dosage: 330 MG, MONTHLY
     Route: 041
     Dates: start: 20130123, end: 20130123
  3. CALCIUM LEVOFOLINATE [Concomitant]
     Active Substance: LEVOLEUCOVORIN CALCIUM
     Indication: RECTAL CANCER
     Dosage: 125 MG, MONTHLY
     Route: 041
     Dates: start: 20121128, end: 20130125
  4. IRINOTECAN HYDROCHLORIDE. [Suspect]
     Active Substance: IRINOTECAN HYDROCHLORIDE
     Indication: RECTAL CANCER
     Dosage: 120 MG, MONTHLY
     Route: 041
     Dates: start: 20121128, end: 20130124
  5. VECTIBIX [Suspect]
     Active Substance: PANITUMUMAB
     Indication: RECTAL CANCER
     Dosage: 330 MG, MONTHLY
     Route: 041
     Dates: start: 20121128, end: 20121128
  6. 5-FU                               /00098801/ [Suspect]
     Active Substance: FLUOROURACIL
     Indication: RECTAL CANCER
     Dosage: 1250 MG, MONTHLY
     Route: 041
     Dates: start: 20121128, end: 20130125

REACTIONS (2)
  - Interstitial lung disease [Fatal]
  - Pneumothorax [Unknown]

NARRATIVE: CASE EVENT DATE: 20130208
